FAERS Safety Report 4331368-2 (Version None)
Quarter: 2004Q1

REPORT INFORMATION
  Report Type: 
  Country: None (occurrence: None)
  Receive Date: 20040329
  Receipt Date: 20040316
  Transmission Date: 20041129
  Serious: Yes (Other)
  Sender: FDA-Public Use
  Company Number: 2003-12-1014

PATIENT
  Age: 15 Year
  Sex: Male

DRUGS (5)
  1. CLARITIN [Suspect]
     Indication: RHINITIS ALLERGIC
     Dosage: P.O. 10MG/DAY ORAL
     Route: 048
     Dates: start: 20031120, end: 20031205
  2. RIZABEN [Suspect]
     Indication: KELOID SCAR
     Dosage: P.O. 300MG/DAY ORAL
     Route: 048
     Dates: start: 20031104, end: 20031205
  3. CLARITHROMYCIN [Concomitant]
  4. SULFUR [Concomitant]
  5. CAMPHOR [Concomitant]

REACTIONS (11)
  - ABDOMINAL PAIN LOWER [None]
  - ALBUMIN URINE [None]
  - DRUG INTERACTION [None]
  - DYSURIA [None]
  - HAEMATURIA [None]
  - INFLAMMATION [None]
  - LABORATORY TEST ABNORMAL [None]
  - LYMPHOCYTE COUNT INCREASED [None]
  - POLLAKIURIA [None]
  - PROTEIN URINE PRESENT [None]
  - RESIDUAL URINE VOLUME [None]
